FAERS Safety Report 7007877-4 (Version None)
Quarter: 2010Q3

REPORT INFORMATION
  Report Type: 
  Country: None (occurrence: None)
  Receive Date: 20100922
  Receipt Date: 20100909
  Transmission Date: 20110219
  Serious: Yes (Hospitalization)
  Sender: FDA-Public Use
  Company Number: US-BAYER-201034213NA

PATIENT
  Age: 82 Year
  Sex: Female
  Weight: 53 kg

DRUGS (15)
  1. AVELOX [Suspect]
     Indication: PRODUCT USED FOR UNKNOWN INDICATION
     Dates: start: 20100514
  2. RANIBIZUMAB [Suspect]
     Indication: MACULAR DEGENERATION
     Dates: end: 20081020
  3. ZYPREXA [Concomitant]
  4. XANAX [Concomitant]
  5. ASPIRIN [Concomitant]
  6. CALCIUM [Concomitant]
  7. MULTI-VITAMINS [Concomitant]
  8. TUMS [Concomitant]
  9. HEPARIN [Concomitant]
  10. NORMAL SALINE [Concomitant]
  11. VITAMIN E [Concomitant]
  12. LOVAZA [Concomitant]
  13. PRAVACHOL [Concomitant]
  14. LOPRESSOR [Concomitant]
  15. AMIODARONE HCL [Concomitant]

REACTIONS (6)
  - ANAPHYLACTIC REACTION [None]
  - CYANOSIS [None]
  - HYPOTENSION [None]
  - SHOCK [None]
  - UNRESPONSIVE TO STIMULI [None]
  - URTICARIA [None]
